FAERS Safety Report 4497072-5 (Version None)
Quarter: 2004Q4

REPORT INFORMATION
  Report Type: 
  Country: None (occurrence: None)
  Receive Date: 20041110
  Receipt Date: 20041101
  Transmission Date: 20050328
  Serious: Yes (Other)
  Sender: FDA-Public Use
  Company Number: IN-JNJFOC-20041100345

PATIENT
  Age: 45 Year
  Sex: Male

DRUGS (2)
  1. REMICADE [Suspect]
     Route: 042
  2. MESACOL [Concomitant]
     Indication: CROHN'S DISEASE

REACTIONS (8)
  - ABDOMINAL PAIN [None]
  - ASTHENIA [None]
  - DRUG INEFFECTIVE [None]
  - INFUSION RELATED REACTION [None]
  - LOOSE STOOLS [None]
  - MYALGIA [None]
  - PYREXIA [None]
  - SECRETION DISCHARGE [None]
